FAERS Safety Report 9291135 (Version 1)
Quarter: 2012Q4

REPORT INFORMATION
  Report Type: Spontaneous
  Country: DE (occurrence: None)
  Receive Date: 20121009
  Receipt Date: 20121009
  Transmission Date: 20130627
  Serious: Yes (Life-Threatening)
  Sender: FDA-Public Use
  Company Number: 12-2445

PATIENT
  Age: 52 Year
  Sex: Female

DRUGS (3)
  1. BOCOUTURE [Suspect]
     Dates: start: 20120903, end: 20120903
  2. LISINOPRIL (LISINOPRIL) [Concomitant]
  3. HYLA(HYALURONIC ACID) [Suspect]

REACTIONS (2)
  - Syncope [None]
  - Muscle spasms [None]
